FAERS Safety Report 10174034 (Version 1)
Quarter: 2014Q2

REPORT INFORMATION
  Report Type: Spontaneous
  Country: US (occurrence: None)
  Receive Date: 20140514
  Receipt Date: 20140514
  Transmission Date: 20141212
  Serious: Yes (Other)
  Sender: FDA-Public Use
  Company Number: None

PATIENT
  Age: 53 Year
  Sex: Female
  Weight: 81.19 kg

DRUGS (1)
  1. ABILIFY [Suspect]
     Indication: ANTIDEPRESSANT THERAPY
     Dosage: 1 PILL
     Route: 048
     Dates: start: 20140507, end: 20140508

REACTIONS (10)
  - Nausea [None]
  - Decreased appetite [None]
  - Feeling cold [None]
  - Cold sweat [None]
  - Hyperhidrosis [None]
  - Hypoaesthesia [None]
  - Visual impairment [None]
  - Feeling abnormal [None]
  - Asthenia [None]
  - Impaired work ability [None]
